FAERS Safety Report 8209375-9 (Version None)
Quarter: 2012Q1

REPORT INFORMATION
  Report Type: 
  Country: None (occurrence: None)
  Receive Date: 20120314
  Receipt Date: 20120307
  Transmission Date: 20120608
  Serious: No
  Sender: FDA-Public Use
  Company Number: US-BAYER-2012-023950

PATIENT
  Age: 87 Year
  Sex: Female
  Weight: 57 kg

DRUGS (9)
  1. ALEVE (CAPLET) [Suspect]
     Indication: ANALGESIC THERAPY
     Dosage: UNK, BID
     Route: 048
     Dates: start: 20120306
  2. VITAMIN D [Concomitant]
  3. ASCORBIC ACID [Concomitant]
  4. CALCIUM [Concomitant]
  5. LOSARTAN POTASSIUM [Concomitant]
  6. FISH OIL [Concomitant]
  7. DOXAZOSIN MESYLATE [Concomitant]
  8. SYMBICORT [Concomitant]
  9. MULTI-VITAMIN [Concomitant]

REACTIONS (1)
  - PAIN [None]
